FAERS Safety Report 18466495 (Version 14)
Quarter: 2021Q1

REPORT INFORMATION
  Report Type: Spontaneous
  Country: CA (occurrence: CA)
  Receive Date: 20201104
  Receipt Date: 20210330
  Transmission Date: 20210419
  Serious: Yes (Hospitalization, Other)
  Sender: FDA-Public Use
  Company Number: CA-CELLTRION INC.-2020CA029296

PATIENT

DRUGS (12)
  1. INFLECTRA [Suspect]
     Active Substance: INFLIXIMAB-DYYB
     Dosage: 10 MG/KG OR 800 MG, 0, 2 AND 6 WEEKS (RE?INDUCTION) THEN EVERY 8 WEEKS
     Route: 041
     Dates: start: 20210319
  2. INFLECTRA [Suspect]
     Active Substance: INFLIXIMAB-DYYB
     Dosage: 10 MG/KG OR 800 MG, 0, 2 AND 6 WEEKS (RE?INDUCTION) THEN EVERY 8 WEEKS
     Route: 041
     Dates: start: 20210319
  3. PREDNISONE. [Concomitant]
     Active Substance: PREDNISONE
     Dosage: UNK, DOSAGE INFO UNKNWON
     Route: 065
  4. SPIRONOLACTONE. [Concomitant]
     Active Substance: SPIRONOLACTONE
     Dosage: UNK, DOSAGE INFO UNKNOWN
     Route: 065
  5. INFLECTRA [Suspect]
     Active Substance: INFLIXIMAB-DYYB
     Dosage: 500 MG AT 2, 6 WEEKS, THEN EVERY 8 WEEKS
     Route: 042
     Dates: start: 20201106, end: 20201106
  6. INFLECTRA [Suspect]
     Active Substance: INFLIXIMAB-DYYB
     Dosage: 10 MG/KG OR 800 MG, 0, 2 AND 6 WEEKS (RE?INDUCTION) THEN EVERY 8 WEEKS
     Route: 041
     Dates: start: 20210306
  7. FUROSEMIDE. [Concomitant]
     Active Substance: FUROSEMIDE
     Dosage: UNK, DOSAGE INFO UNKNOWN
     Route: 065
  8. PERINDOPRIL [Concomitant]
     Active Substance: PERINDOPRIL
     Dosage: UNK, DOSAGE INFO UNKNOWN
     Route: 065
  9. INFLECTRA [Suspect]
     Active Substance: INFLIXIMAB-DYYB
     Indication: COLITIS ULCERATIVE
     Dosage: 500 MG AT 2, 6 WEEKS, THEN EVERY 8 WEEKS/WEEK 0 IN HOSPITAL
     Route: 042
     Dates: start: 20201008, end: 20201008
  10. INFLECTRA [Suspect]
     Active Substance: INFLIXIMAB-DYYB
     Dosage: 500 MG AT 2, 6 WEEKS, THEN EVERY 8 WEEKS
     Route: 042
     Dates: start: 20201224
  11. CIPROFLOXACIN. [Concomitant]
     Active Substance: CIPROFLOXACIN
     Indication: SKIN ULCER
     Dosage: UNK, DOSAGE INFO UNK
     Route: 065
  12. INFLECTRA [Suspect]
     Active Substance: INFLIXIMAB-DYYB
     Dosage: 10 MG/KG OR 800 MG, 0, 2 AND 6 WEEKS (RE?INDUCTION) THEN EVERY 8 WEEKS
     Route: 041
     Dates: start: 20210319

REACTIONS (26)
  - Off label use [Unknown]
  - Nausea [Unknown]
  - Infected skin ulcer [Unknown]
  - Cholecystitis [Not Recovered/Not Resolved]
  - Cellulitis [Unknown]
  - Asthenia [Unknown]
  - Pain in extremity [Unknown]
  - Hypertension [Unknown]
  - Restlessness [Unknown]
  - Off label use [Unknown]
  - Clostridium difficile infection [Unknown]
  - Hypokalaemia [Unknown]
  - Dyspepsia [Not Recovered/Not Resolved]
  - Weight decreased [Unknown]
  - Condition aggravated [Not Recovered/Not Resolved]
  - Cholelithiasis [Not Recovered/Not Resolved]
  - Dehydration [Unknown]
  - Arthralgia [Unknown]
  - Myalgia [Unknown]
  - Incontinence [Unknown]
  - Back pain [Unknown]
  - Gait disturbance [Unknown]
  - Fatigue [Unknown]
  - Diarrhoea [Unknown]
  - Heart rate increased [Unknown]
  - Loss of personal independence in daily activities [Unknown]

NARRATIVE: CASE EVENT DATE: 2020
